FAERS Safety Report 14923850 (Version 3)
Quarter: 2018Q3

REPORT INFORMATION
  Report Type: Spontaneous
  Country: GB (occurrence: GB)
  Receive Date: 20180522
  Receipt Date: 20180830
  Transmission Date: 20181010
  Serious: Yes (Death, Other)
  Sender: FDA-Public Use
  Company Number: GB-PFIZER INC-2018202349

PATIENT
  Sex: Female

DRUGS (3)
  1. MEROPENEM. [Suspect]
     Active Substance: MEROPENEM
     Dosage: 1 DF, 2X/DAY (EVERY 12 HOURS)
     Route: 065
     Dates: start: 20180326
  2. PARACETAMOL [Concomitant]
     Active Substance: ACETAMINOPHEN
     Dosage: UNK
     Route: 042
  3. TAZOCIN [Concomitant]
     Active Substance: PIPERACILLIN SODIUM\TAZOBACTAM SODIUM
     Indication: PNEUMONIA
     Dosage: 13.5 G, 1X/DAY
     Dates: start: 20180323, end: 20180325

REACTIONS (12)
  - Pharyngeal oedema [Unknown]
  - Loss of consciousness [Unknown]
  - Dyspnoea [Unknown]
  - Abdominal pain upper [Unknown]
  - Peripheral swelling [Unknown]
  - Hypersensitivity [Fatal]
  - Pruritus generalised [Unknown]
  - Erythema [Unknown]
  - Swelling [Unknown]
  - Contraindicated drug prescribed [Unknown]
  - Flushing [Unknown]
  - Cold sweat [Unknown]

NARRATIVE: CASE EVENT DATE: 20180326
